FAERS Safety Report 26058907 (Version 2)
Quarter: 2025Q4

REPORT INFORMATION
  Report Type: Spontaneous
  Country: GB (occurrence: GB)
  Receive Date: 20251118
  Receipt Date: 20251120
  Transmission Date: 20260117
  Serious: Yes (Other)
  Sender: ABBVIE
  Company Number: None

PATIENT
  Age: 44 Year
  Sex: Female
  Weight: 97 kg

DRUGS (6)
  1. ATOGEPANT [Suspect]
     Active Substance: ATOGEPANT
     Indication: Ill-defined disorder
     Route: 048
  2. AMITRIPTYLINE HYDROCHLORIDE [Concomitant]
     Active Substance: AMITRIPTYLINE HYDROCHLORIDE
     Indication: Ill-defined disorder
     Dosage: TWO TABLET TO BE TAKEN AT NIGHT TO HELP PAIN CO...
     Route: 065
     Dates: start: 20251017
  3. MOUNJARO [Concomitant]
     Active Substance: TIRZEPATIDE
     Indication: Ill-defined disorder
     Dosage: FOR INFORMATION ONLY - DO NOT ISSUE
     Dates: start: 20251015
  4. FERROUS SULFATE [Concomitant]
     Active Substance: FERROUS SULFATE
     Indication: Ill-defined disorder
     Dosage: ONE TABLET TO BE TAKEN ONCE DAILY. CONTINUE FOR...
     Route: 065
     Dates: start: 20250630
  5. PROPRANOLOL [Concomitant]
     Active Substance: PROPRANOLOL HYDROCHLORIDE
     Indication: Ill-defined disorder
     Dosage: ONE TABLET TO BE TAKEN THREE TIMES A DAY
     Route: 065
     Dates: start: 20241029
  6. HYDROXOCOBALAMIN [Concomitant]
     Active Substance: HYDROXOCOBALAMIN
     Indication: Ill-defined disorder
     Dosage: 1MG BY IM INJECTION AS DIRECTED
     Route: 065
     Dates: start: 20250912, end: 20250915

REACTIONS (2)
  - Palpitations [Recovered/Resolved]
  - Dyspnoea [Recovered/Resolved]
